FAERS Safety Report 24105303 (Version 1)
Quarter: 2024Q3

REPORT INFORMATION
  Report Type: Spontaneous
  Country: JP (occurrence: None)
  Receive Date: 20240717
  Receipt Date: 20240717
  Transmission Date: 20241017
  Serious: Yes (Other)
  Sender: ASTRAZENECA
  Company Number: 2024A159105

PATIENT
  Age: 84 Year
  Sex: Male

DRUGS (1)
  1. TAGRISSO [Suspect]
     Active Substance: OSIMERTINIB
     Indication: Non-small cell lung cancer
     Route: 048

REACTIONS (5)
  - Chromaturia [Unknown]
  - Pollakiuria [Unknown]
  - Cardiac failure congestive [Unknown]
  - Hepatic function abnormal [Unknown]
  - Dehydration [Unknown]
